FAERS Safety Report 10424189 (Version 3)
Quarter: 2015Q1

REPORT INFORMATION
  Report Type: Spontaneous
  Country: US (occurrence: None)
  Receive Date: 20140722
  Receipt Date: 20150120
  Transmission Date: 20150720
  Serious: No
  Sender: FDA-Public Use
  Company Number: AEGR000457

PATIENT
  Age: 68 Year
  Sex: Female
  Weight: 70.3 kg

DRUGS (21)
  1. AVAPRO [Concomitant]
     Active Substance: IRBESARTAN
  2. ZANTAC [Concomitant]
     Active Substance: RANITIDINE HYDROCHLORIDE
  3. SERTRALINE [Concomitant]
     Active Substance: SERTRALINE HYDROCHLORIDE
  4. KCI (KCI) [Concomitant]
  5. LORAZEPAM (LORAZEPAM) [Concomitant]
     Active Substance: LORAZEPAM
  6. VIT B COMPLEX (VITAMIN B COMPLEX) [Concomitant]
  7. TUMS (CALCIIUM CARBONATE) [Concomitant]
  8. JUXTAPID [Suspect]
     Active Substance: LOMITAPIDE MESYLATE
     Indication: TYPE IIA HYPERLIPIDAEMIA
     Route: 048
     Dates: start: 20140429, end: 2014
  9. FUROSEMIDE (FUROSEMIDE) [Concomitant]
     Active Substance: FUROSEMIDE
  10. HYDROCODONE/APAP (HYDROCODONE BITARTRATE, PARACETAMOL) [Concomitant]
  11. NORTRIPTYLINE (NORTRIPTYLINE) [Concomitant]
     Active Substance: NORTRIPTYLINE
  12. ASPIRIN. [Concomitant]
     Active Substance: ASPIRIN
  13. ISOSORBIDE MONONITRATE (ISOSORBIDE MONONITRATE) [Concomitant]
     Active Substance: ISOSORBIDE MONONITRATE
  14. FISH OIL (FISH OIL) [Concomitant]
     Active Substance: FISH OIL
  15. NIACIN (NICOTINIC ACID) [Concomitant]
  16. NASAREL (FLUNISOLIDE) [Concomitant]
  17. GLYCOPYRROLATE (GLYCOPYRRONIUM BROMIDE) [Concomitant]
  18. CLARITIN [Concomitant]
     Active Substance: LORATADINE
  19. VITAMIN D (ERGOCALCIFEROL) [Concomitant]
     Active Substance: ERGOCALCIFEROL
  20. COREG [Concomitant]
     Active Substance: CARVEDILOL
  21. VIT B12 (CYANOCOBALAMIN) [Concomitant]

REACTIONS (6)
  - Oropharyngeal pain [None]
  - Abdominal discomfort [None]
  - Abdominal pain upper [None]
  - Nausea [None]
  - Weight decreased [None]
  - Dyspepsia [None]

NARRATIVE: CASE EVENT DATE: 20140430
